FAERS Safety Report 19042225 (Version 1)
Quarter: 2021Q1

REPORT INFORMATION
  Report Type: Report from Study
  Country: IN (occurrence: IN)
  Receive Date: 20210322
  Receipt Date: 20210322
  Transmission Date: 20210420
  Serious: Yes (Hospitalization, Other)
  Sender: FDA-Public Use
  Company Number: PHHY2019IN104771

PATIENT
  Age: 41 Year
  Sex: Male

DRUGS (4)
  1. TASIGNA [Suspect]
     Active Substance: NILOTINIB
     Indication: CHRONIC MYELOID LEUKAEMIA
     Dosage: 300 MG, BID
     Route: 048
     Dates: start: 20190118, end: 20190414
  2. TASIGNA [Suspect]
     Active Substance: NILOTINIB
     Dosage: 400 MG, BID
     Route: 048
     Dates: start: 20190918, end: 20210304
  3. REVOLADE [Suspect]
     Active Substance: ELTROMBOPAG OLAMINE
     Indication: PANCYTOPENIA
     Dosage: 50 MG, QD
     Route: 048
     Dates: start: 20190420
  4. TASIGNA [Suspect]
     Active Substance: NILOTINIB
     Dosage: 300 MG, BID
     Route: 048
     Dates: start: 20190513

REACTIONS (5)
  - Pancytopenia [Recovered/Resolved]
  - Cytogenetic analysis abnormal [Not Recovered/Not Resolved]
  - Philadelphia chromosome positive [Unknown]
  - Weight increased [Unknown]
  - Product use in unapproved indication [Unknown]

NARRATIVE: CASE EVENT DATE: 20190414
